FAERS Safety Report 15738582 (Version 4)
Quarter: 2019Q1

REPORT INFORMATION
  Report Type: Spontaneous
  Country: US (occurrence: US)
  Receive Date: 20181219
  Receipt Date: 20190212
  Transmission Date: 20190417
  Serious: No
  Sender: FDA-Public Use
  Company Number: US-PFIZER INC-2018516479

PATIENT
  Age: 13 Year
  Sex: Male
  Weight: 40.82 kg

DRUGS (2)
  1. GENOTROPIN [Suspect]
     Active Substance: SOMATROPIN
     Indication: GROWTH HORMONE DEFICIENCY
     Dosage: 1.6 MG, UNK
     Dates: start: 201808
  2. GENOTROPIN [Suspect]
     Active Substance: SOMATROPIN
     Dosage: 1.6 MG, DAILY
     Dates: start: 201809

REACTIONS (4)
  - Drug ineffective [Unknown]
  - Product storage error [Unknown]
  - Product dose omission [Unknown]
  - Product administration error [Unknown]

NARRATIVE: CASE EVENT DATE: 20181210
